FAERS Safety Report 23036284 (Version 1)
Quarter: 2023Q4

REPORT INFORMATION
  Report Type: Spontaneous
  Country: CN (occurrence: CN)
  Receive Date: 20231006
  Receipt Date: 20231006
  Transmission Date: 20240109
  Serious: Yes (Hospitalization, Other)
  Sender: FDA-Public Use
  Company Number: CN-GLAXOSMITHKLINE-CN2023APC134042

PATIENT

DRUGS (1)
  1. LAMOTRIGINE [Suspect]
     Active Substance: LAMOTRIGINE
     Indication: Epilepsy
     Dosage: 50 MG, BID
     Route: 048
     Dates: start: 20230522, end: 20230822

REACTIONS (12)
  - Drug eruption [Recovered/Resolved]
  - Pyrexia [Unknown]
  - Swelling face [Unknown]
  - Peripheral swelling [Unknown]
  - Rash [Unknown]
  - Drug reaction with eosinophilia and systemic symptoms [Unknown]
  - Skin lesion [Unknown]
  - Purulent discharge [Unknown]
  - Lip ulceration [Unknown]
  - Lip dry [Unknown]
  - Chapped lips [Unknown]
  - Condition aggravated [Unknown]

NARRATIVE: CASE EVENT DATE: 20230918
